FAERS Safety Report 9708164 (Version 2)
Quarter: 2013Q4

REPORT INFORMATION
  Report Type: Spontaneous
  Country: US (occurrence: US)
  Receive Date: 20131125
  Receipt Date: 20131204
  Transmission Date: 20140711
  Serious: Yes (Other)
  Sender: FDA-Public Use
  Company Number: US-BAXTER-2013BAX046747

PATIENT
  Sex: Male
  Weight: 85.45 kg

DRUGS (5)
  1. ADVATE [Suspect]
     Indication: FACTOR VIII DEFICIENCY
     Route: 065
  2. NORCO [Concomitant]
     Indication: PAIN
     Dosage: 5/325 EVERY 6 HOURS AS NEEDED FOR PAIN
     Route: 048
  3. FERROUS SULFATE [Concomitant]
     Indication: ANAEMIA
     Route: 048
  4. XANAX [Concomitant]
     Indication: PRODUCT USED FOR UNKNOWN INDICATION
     Route: 048
  5. ZOLOFT [Concomitant]
     Indication: PRODUCT USED FOR UNKNOWN INDICATION
     Route: 048

REACTIONS (1)
  - Factor VIII inhibition [Unknown]
